FAERS Safety Report 10505777 (Version 1)
Quarter: 2014Q4

REPORT INFORMATION
  Report Type: Spontaneous
  Country: IT (occurrence: IT)
  Receive Date: 20141008
  Receipt Date: 20141008
  Transmission Date: 20150528
  Serious: Yes (Hospitalization)
  Sender: FDA-Public Use
  Company Number: PHHY2014IT130016

PATIENT
  Age: 6 Year
  Sex: Female

DRUGS (1)
  1. AMOXICILLIN. [Suspect]
     Active Substance: AMOXICILLIN
     Dosage: 50MG/KG/DAY IN TWO DOSES
     Route: 048

REACTIONS (8)
  - Neutrophilia [Recovered/Resolved]
  - Methaemoglobinaemia [Recovered/Resolved]
  - Hypotension [Recovering/Resolving]
  - Enterocolitis [Recovering/Resolving]
  - Vomiting [Unknown]
  - Lethargy [Recovered/Resolved]
  - Pallor [Unknown]
  - Diarrhoea [Unknown]
